FAERS Safety Report 4599283-7 (Version None)
Quarter: 2005Q1

REPORT INFORMATION
  Report Type: 
  Country: None (occurrence: None)
  Receive Date: 20050302
  Receipt Date: 20050218
  Transmission Date: 20050727
  Serious: Yes (Hospitalization)
  Sender: FDA-Public Use
  Company Number: 6013179

PATIENT
  Age: 52 Year
  Sex: Male

DRUGS (6)
  1. BISOPROLOL FUMARATE [Suspect]
     Dosage: 1 DOSAGE FORMS (1 DOSAGE FORMS, 1 IN 1 D) ORAL
     Route: 048
     Dates: start: 20050121, end: 20050125
  2. FOZITEC (TABLET) (FOSINOPRIL) [Suspect]
     Indication: HYPERTENSION
     Dosage: ORAL
     Route: 048
     Dates: end: 20050121
  3. ISKEDYL (TABLET) (RAUBASINE, DIHYDROERGOCRISTINE MESILATE) [Suspect]
     Dosage: ORAL
     Route: 048
     Dates: end: 20050125
  4. VASTAREL (35 MG, TABLET) (TRIMETAZIDINE HYDROCHLORIDE) [Suspect]
     Dosage: 70 MG (35 MG, 2 IN 1 D) ORAL
     Route: 048
     Dates: end: 20050125
  5. ATACAND [Suspect]
     Dosage: 16 MG ORAL
     Route: 048
     Dates: start: 20050121, end: 20050125
  6. ZEFFIX (TABLET) (LAMIVUDINE) [Suspect]
     Indication: HEPATIC CIRRHOSIS
     Dosage: 100 MG ORAL
     Route: 048
     Dates: start: 20030315, end: 20050125

REACTIONS (15)
  - ANURIA [None]
  - ASCITES [None]
  - ATRIAL FIBRILLATION [None]
  - CYTOLYTIC HEPATITIS [None]
  - DYSPNOEA [None]
  - HYPERKALAEMIA [None]
  - HYPOTENSION [None]
  - INFLAMMATION [None]
  - LACTIC ACIDOSIS [None]
  - MALAISE [None]
  - METABOLIC ACIDOSIS [None]
  - RENAL FAILURE [None]
  - RENAL FAILURE ACUTE [None]
  - TRANSAMINASES INCREASED [None]
  - URINE OUTPUT DECREASED [None]
